FAERS Safety Report 19162093 (Version 25)
Quarter: 2022Q4

REPORT INFORMATION
  Report Type: Spontaneous
  Country: CA (occurrence: CA)
  Receive Date: 20210421
  Receipt Date: 20221202
  Transmission Date: 20230112
  Serious: Yes (Other)
  Sender: FDA-Public Use
  Company Number: CA-CELLTRION INC.-2020CA029281

PATIENT

DRUGS (31)
  1. INFLECTRA [Suspect]
     Active Substance: INFLIXIMAB-DYYB
     Indication: Colitis ulcerative
     Dosage: 10 MG/KG, EVERY 6 WEEKS AT 0, 1, 3 WEEKS, THEN EVERY 6 WEEKS
     Route: 042
     Dates: start: 20201006, end: 20220630
  2. INFLECTRA [Suspect]
     Active Substance: INFLIXIMAB-DYYB
     Dosage: 10 MG/KG, AT 0, 1, 3 WEEKS, THEN EVERY 6 WEEKS
     Route: 042
     Dates: start: 20201013
  3. INFLECTRA [Suspect]
     Active Substance: INFLIXIMAB-DYYB
     Dosage: 10 MG/KG, AT 0, 1, 3 WEEKS, THEN EVERY 6 WEEKS
     Route: 042
     Dates: start: 20201013
  4. INFLECTRA [Suspect]
     Active Substance: INFLIXIMAB-DYYB
     Dosage: 10 MG/KG, AT 0, 1, 3 WEEKS, THEN EVERY 6 WEEKS
     Route: 042
     Dates: start: 20201013
  5. INFLECTRA [Suspect]
     Active Substance: INFLIXIMAB-DYYB
     Dosage: 10 MG/KG, AT 0, 1, 3 WEEKS, THEN EVERY 6 WEEKS
     Route: 042
     Dates: start: 20201013
  6. INFLECTRA [Suspect]
     Active Substance: INFLIXIMAB-DYYB
     Dosage: 10 MG/KG, AT 0, 1, 3 WEEKS, THEN EVERY 6 WEEKS
     Route: 042
     Dates: start: 20201013
  7. INFLECTRA [Suspect]
     Active Substance: INFLIXIMAB-DYYB
     Dosage: 10 MG/KG, AT 0, 1, 3 WEEKS, THEN EVERY 6 WEEKS
     Route: 042
     Dates: start: 20201026
  8. INFLECTRA [Suspect]
     Active Substance: INFLIXIMAB-DYYB
     Dosage: 10 MG/KG, AT 0, 1, 3 WEEKS, THEN EVERY 6 WEEKS
     Route: 042
     Dates: start: 20210301
  9. INFLECTRA [Suspect]
     Active Substance: INFLIXIMAB-DYYB
     Dosage: 10 MG/KG, AT 0, 1, 3 WEEKS, THEN EVERY 6 WEEKS
     Route: 042
     Dates: start: 20210301
  10. INFLECTRA [Suspect]
     Active Substance: INFLIXIMAB-DYYB
     Dosage: 10 MG/KG, AT 0, 1, 3 WEEKS, THEN EVERY 6 WEEKS
     Route: 042
     Dates: start: 20210412
  11. INFLECTRA [Suspect]
     Active Substance: INFLIXIMAB-DYYB
     Dosage: 10 MG/KG, AT 0, 1, 3 WEEKS, THEN EVERY 6 WEEKS
     Route: 042
     Dates: start: 20210525
  12. INFLECTRA [Suspect]
     Active Substance: INFLIXIMAB-DYYB
     Dosage: 10 MG/KG, AT 0, 1, 3 WEEKS, THEN EVERY 6 WEEKS
     Route: 042
     Dates: start: 20210705
  13. INFLECTRA [Suspect]
     Active Substance: INFLIXIMAB-DYYB
     Dosage: 10 MG/KG, AT 0, 1, 3 WEEKS, THEN EVERY 6 WEEKS
     Route: 042
     Dates: start: 20210820
  14. INFLECTRA [Suspect]
     Active Substance: INFLIXIMAB-DYYB
     Dosage: 10 MG/KG, AT 0, 1, 3 WEEKS, THEN EVERY 6 WEEKS
     Route: 042
     Dates: start: 20210930
  15. INFLECTRA [Suspect]
     Active Substance: INFLIXIMAB-DYYB
     Dosage: 10 MG/KG, AT 0, 1, 3 WEEKS, THEN EVERY 6 WEEKS
     Route: 042
     Dates: start: 20211111
  16. INFLECTRA [Suspect]
     Active Substance: INFLIXIMAB-DYYB
     Dosage: 10 MG/KG, AT 0, 1, 3 WEEKS, THEN EVERY 6 WEEKS
     Route: 042
     Dates: start: 20211222
  17. INFLECTRA [Suspect]
     Active Substance: INFLIXIMAB-DYYB
     Dosage: 10 MG/KG, AT 0, 1, 3 WEEKS, THEN EVERY 6 WEEKS
     Route: 042
     Dates: start: 20220210
  18. INFLECTRA [Suspect]
     Active Substance: INFLIXIMAB-DYYB
     Dosage: 10 MG/KG,AT 0, 1, 3 WEEKS, THEN EVERY 6 WEEKS
     Route: 042
     Dates: start: 20220324
  19. INFLECTRA [Suspect]
     Active Substance: INFLIXIMAB-DYYB
     Dosage: 10 MG/KG,AT 0, 1, 3 WEEKS, THEN EVERY 6 WEEKS
     Route: 042
     Dates: start: 20220519
  20. INFLECTRA [Suspect]
     Active Substance: INFLIXIMAB-DYYB
     Dosage: 10 MG/KG,AT 0, 1, 3 WEEKS, THEN EVERY 6 WEEKS
     Route: 042
     Dates: start: 20220630
  21. INFLECTRA [Suspect]
     Active Substance: INFLIXIMAB-DYYB
     Dosage: 10 MG/KG, EVERY 4 WEEKS
     Route: 042
     Dates: start: 20220725
  22. INFLECTRA [Suspect]
     Active Substance: INFLIXIMAB-DYYB
     Dosage: 10 MG/KG, EVERY 4 WEEKS
     Route: 042
     Dates: start: 20220725
  23. INFLECTRA [Suspect]
     Active Substance: INFLIXIMAB-DYYB
     Dosage: 10 MG/KG, EVERY 4 WEEKS
     Route: 042
     Dates: start: 20220822
  24. INFLECTRA [Suspect]
     Active Substance: INFLIXIMAB-DYYB
     Dosage: 10 MG/KG, EVERY 4 WEEKS
     Route: 042
     Dates: start: 20220928
  25. INFLECTRA [Suspect]
     Active Substance: INFLIXIMAB-DYYB
     Dosage: 10 MG/KG, EVERY 4 WEEKS
     Route: 042
     Dates: start: 20221026
  26. INFLECTRA [Suspect]
     Active Substance: INFLIXIMAB-DYYB
     Dosage: 10 MG/KG , EVERY 4 WEEKS
     Route: 042
     Dates: start: 20221123
  27. ALESSE 28 [Concomitant]
     Active Substance: ETHINYL ESTRADIOL\LEVONORGESTREL
     Dosage: 1 DF, DOSAGE NOT AVAILABLE
     Route: 065
  28. DOXYCYCLINE 3DDD [Concomitant]
     Dosage: 100 MG, 2X/DAY 3 WEEKS
     Route: 048
  29. MESALAMINE [Concomitant]
     Active Substance: MESALAMINE
     Dosage: 1 DF, DOSAGE NOT AVAILABLE
     Route: 065
  30. PREDNISONE [Concomitant]
     Active Substance: PREDNISONE
     Dosage: 1 DF
     Route: 065
     Dates: start: 20200916
  31. PREDNISONE [Concomitant]
     Active Substance: PREDNISONE
     Dosage: 1 DF, DOSAGE NOT AVAILABLE
     Route: 065

REACTIONS (11)
  - Haematochezia [Not Recovered/Not Resolved]
  - Vein rupture [Recovered/Resolved]
  - Condition aggravated [Recovering/Resolving]
  - Malaise [Unknown]
  - Poor venous access [Unknown]
  - Eczema [Not Recovered/Not Resolved]
  - Dermatitis contact [Not Recovered/Not Resolved]
  - Rash [Unknown]
  - Off label use [Unknown]
  - Off label use [Unknown]
  - Inappropriate schedule of product administration [Unknown]

NARRATIVE: CASE EVENT DATE: 20201006
